FAERS Safety Report 6600430-3 (Version None)
Quarter: 2010Q1

REPORT INFORMATION
  Report Type: 
  Country: None (occurrence: None)
  Receive Date: 20100224
  Receipt Date: 20100211
  Transmission Date: 20100710
  Serious: Yes (Hospitalization, Disabling, Other)
  Sender: FDA-Public Use
  Company Number: US-CELGENEUS-163-21880-10010960

PATIENT
  Sex: Male
  Weight: 63.56 kg

DRUGS (5)
  1. REVLIMID [Suspect]
     Route: 048
     Dates: start: 20080801, end: 20081001
  2. REVLIMID [Suspect]
     Route: 048
     Dates: start: 20090331, end: 20091229
  3. DEXAMETHASONE [Concomitant]
     Indication: DRUG USE FOR UNKNOWN INDICATION
     Dates: start: 20070206
  4. VINCRISTINE [Concomitant]
     Indication: DRUG USE FOR UNKNOWN INDICATION
     Route: 051
     Dates: start: 20091204, end: 20100203
  5. DOXORUBICIN HCL [Concomitant]
     Indication: DRUG USE FOR UNKNOWN INDICATION
     Route: 051
     Dates: start: 20091204, end: 20100203

REACTIONS (5)
  - BRAIN ABSCESS [None]
  - CONFUSIONAL STATE [None]
  - DISEASE PROGRESSION [None]
  - PNEUMONIA [None]
  - RENAL FAILURE ACUTE [None]
